FAERS Safety Report 9776355 (Version 1)
Quarter: 2013Q4

REPORT INFORMATION
  Report Type: Spontaneous
  Country: DE (occurrence: DE)
  Receive Date: 20131220
  Receipt Date: 20131220
  Transmission Date: 20140711
  Serious: Yes (Congenital Anomaly)
  Sender: FDA-Public Use
  Company Number: GXKR2013DE003851

PATIENT
  Sex: 0

DRUGS (5)
  1. DICLOFENAC [Suspect]
     Indication: INTERVERTEBRAL DISC PROTRUSION
     Dosage: MATERNAL DOSE 75 MG/D
     Route: 064
  2. IBUPROFEN [Suspect]
     Indication: INTERVERTEBRAL DISC PROTRUSION
     Dosage: MATERNAL DOSE 800 MG/D
     Route: 064
  3. NOVALGIN [Suspect]
     Indication: INTERVERTEBRAL DISC PROTRUSION
  4. TRAMADOL [Concomitant]
     Indication: INTERVERTEBRAL DISC PROTRUSION
     Route: 064
  5. TILIDIN [Concomitant]
     Indication: INTERVERTEBRAL DISC PROTRUSION
     Route: 064

REACTIONS (5)
  - Neonatal respiratory distress syndrome [Recovered/Resolved]
  - Macrocephaly [Unknown]
  - Pulmonary artery stenosis congenital [Not Recovered/Not Resolved]
  - Atrial septal defect [Not Recovered/Not Resolved]
  - Maternal drugs affecting foetus [None]
